FAERS Safety Report 5566886-2 (Version None)
Quarter: 2007Q4

REPORT INFORMATION
  Report Type: 
  Country: None (occurrence: None)
  Receive Date: 20071219
  Receipt Date: 20061201
  Transmission Date: 20080405
  Serious: No
  Sender: FDA-Public Use
  Company Number: US-BRISTOL-MYERS SQUIBB COMPANY-13567839

PATIENT
  Age: 67 Year
  Sex: Female
  Weight: 66 kg

DRUGS (3)
  1. PRAVACHOL [Suspect]
     Indication: BLOOD CHOLESTEROL INCREASED
     Dosage: LOT NUMBER IS EITHER #C5828B OR 1131563A2
     Route: 048
     Dates: start: 20060101, end: 20061031
  2. TOPROL-XL [Concomitant]
  3. ASPIRIN [Concomitant]

REACTIONS (2)
  - BURNING SENSATION [None]
  - DRUG INEFFECTIVE [None]
